FAERS Safety Report 4743619-0 (Version None)
Quarter: 2005Q3

REPORT INFORMATION
  Report Type: 
  Country: None (occurrence: None)
  Receive Date: 20050810
  Receipt Date: 20050810
  Transmission Date: 20060218
  Serious: No
  Sender: FDA-Public Use
  Company Number: None

PATIENT
  Sex: Male
  Weight: 79.3795 kg

DRUGS (1)
  1. PERCOCET [Suspect]
     Indication: BACK PAIN
     Dosage: 5/375 ?  Q 4-6 HRS   PO
     Route: 048

REACTIONS (2)
  - NAUSEA [None]
  - RASH [None]
